FAERS Safety Report 21892047 (Version 2)
Quarter: 2023Q1

REPORT INFORMATION
  Report Type: Report from Study
  Country: US (occurrence: US)
  Receive Date: 20230120
  Receipt Date: 20230221
  Transmission Date: 20230417
  Serious: No
  Sender: FDA-Public Use
  Company Number: US-ABBVIE-22K-163-4375496-00

PATIENT
  Sex: Male

DRUGS (5)
  1. HUMIRA [Suspect]
     Active Substance: ADALIMUMAB
     Indication: Colitis ulcerative
     Route: 058
  2. HUMIRA [Suspect]
     Active Substance: ADALIMUMAB
     Indication: Ankylosing spondylitis
  3. MODERNA COVID-19 VACCINE [Concomitant]
     Active Substance: ELASOMERAN
     Indication: COVID-19 immunisation
     Dosage: TIME INTERVAL: 1 TOTAL: FIRST DOSE FREQUENCY 1 IN ONCE
     Route: 030
     Dates: start: 20210404, end: 20210404
  4. MODERNA COVID-19 VACCINE [Concomitant]
     Active Substance: ELASOMERAN
     Indication: COVID-19 immunisation
     Dosage: TIME INTERVAL: 1 TOTAL: SECOND DOSE FREQUENCY 1 IN ONCE
     Route: 030
     Dates: start: 20210505, end: 20210505
  5. MODERNA COVID-19 VACCINE [Concomitant]
     Active Substance: ELASOMERAN
     Indication: COVID-19 immunisation
     Dosage: TIME INTERVAL: 1 TOTAL: BOOSTER DOSE? FREQUENCY 1 IN ONCE
     Route: 030
     Dates: start: 20220418, end: 20220418

REACTIONS (6)
  - Skin discolouration [Unknown]
  - Condition aggravated [Not Recovered/Not Resolved]
  - Rash papular [Unknown]
  - Rash macular [Unknown]
  - Drug eruption [Not Recovered/Not Resolved]
  - Stress [Not Recovered/Not Resolved]
